FAERS Safety Report 16938936 (Version 1)
Quarter: 2019Q4

REPORT INFORMATION
  Report Type: Spontaneous
  Country: US (occurrence: US)
  Receive Date: 20191020
  Receipt Date: 20191020
  Transmission Date: 20200122
  Serious: No
  Sender: FDA-Public Use
  Company Number: US-ELI_LILLY_AND_COMPANY-US201910007709

PATIENT
  Sex: Female

DRUGS (3)
  1. BASAGLAR [Suspect]
     Active Substance: INSULIN GLARGINE
     Indication: TYPE 1 DIABETES MELLITUS
     Dosage: 23 U, UNKNOWN
     Route: 065
  2. BASAGLAR [Suspect]
     Active Substance: INSULIN GLARGINE
     Dosage: 23 U, UNKNOWN
     Route: 065
  3. NOVOLOG [Concomitant]
     Active Substance: INSULIN ASPART
     Indication: PRODUCT USED FOR UNKNOWN INDICATION

REACTIONS (2)
  - Blood glucose increased [Unknown]
  - Drug ineffective [Unknown]
